FAERS Safety Report 11173939 (Version 1)
Quarter: 2015Q2

REPORT INFORMATION
  Report Type: Spontaneous
  Country: JP (occurrence: None)
  Receive Date: 20150605
  Receipt Date: 20150605
  Transmission Date: 20150821
  Serious: Yes (Hospitalization)
  Sender: FDA-Public Use
  Company Number: SP09578

PATIENT
  Age: 58 Year
  Sex: Male

DRUGS (5)
  1. MOVIPREP [Suspect]
     Active Substance: ASCORBIC ACID\POLYETHYLENE GLYCOL 3350\POTASSIUM CHLORIDE\SODIUM ASCORBATE\SODIUM CHLORIDE\SODIUM SULFATE
     Indication: ENDOSCOPY LARGE BOWEL
     Route: 048
     Dates: start: 20150330, end: 20150330
  2. DORMICUM [Concomitant]
     Active Substance: MIDAZOLAM\MIDAZOLAM HYDROCHLORIDE
  3. GLUCAGON. [Concomitant]
     Active Substance: GLUCAGON
  4. DOBUTAMINE HCL [Concomitant]
     Active Substance: DOBUTAMINE HYDROCHLORIDE
  5. OPYSTAN [Concomitant]
     Active Substance: MEPERIDINE

REACTIONS (4)
  - Subarachnoid haemorrhage [None]
  - Traumatic haemorrhage [None]
  - Fall [None]
  - Loss of consciousness [None]

NARRATIVE: CASE EVENT DATE: 20150330
